FAERS Safety Report 7687370-6 (Version None)
Quarter: 2011Q3

REPORT INFORMATION
  Report Type: 
  Country: None (occurrence: None)
  Receive Date: 20110816
  Receipt Date: 20100709
  Transmission Date: 20111222
  Serious: Yes (Other)
  Sender: FDA-Public Use
  Company Number: US-BAYER-201011755NA

PATIENT
  Age: 73 Year
  Sex: Male
  Weight: 80 kg

DRUGS (17)
  1. OPTIMARK [Suspect]
     Indication: NUCLEAR MAGNETIC RESONANCE IMAGING
  2. PROHANCE [Suspect]
     Indication: NUCLEAR MAGNETIC RESONANCE IMAGING
  3. CONTRAST MEDIA [Suspect]
     Dates: start: 20070102, end: 20070102
  4. GADOLINIUM IN UNSPECIFIED DRUG [Suspect]
     Indication: NUCLEAR MAGNETIC RESONANCE IMAGING
     Dosage: UNK UNK, ONCE
     Dates: start: 20050612, end: 20050612
  5. RENAGEL [Concomitant]
  6. COUMADIN [Concomitant]
  7. LOPRESSOR [Concomitant]
  8. ZEMPLAR [Concomitant]
     Dosage: 1.5 MCG WITH DIALYSIS
     Dates: start: 20070201
  9. OMNISCAN [Suspect]
     Indication: NUCLEAR MAGNETIC RESONANCE IMAGING BRAIN
     Dates: start: 20070102, end: 20070102
  10. OMNISCAN [Suspect]
     Dates: start: 20070211, end: 20070211
  11. MULTIHANCE [Suspect]
     Indication: NUCLEAR MAGNETIC RESONANCE IMAGING
  12. CONTRAST MEDIA [Suspect]
     Dates: start: 20070211, end: 20070211
  13. NEPHROCAPS [Concomitant]
  14. MAGNEVIST [Suspect]
     Indication: NUCLEAR MAGNETIC RESONANCE IMAGING
  15. EPOGEN [Concomitant]
     Dosage: 22,000 UNITS WITH DIALYSIS
     Dates: start: 20070201
  16. OMNISCAN [Suspect]
     Indication: NUCLEAR MAGNETIC RESONANCE IMAGING
     Dates: start: 20050615, end: 20050615
  17. CONTRAST MEDIA [Suspect]
     Indication: NUCLEAR MAGNETIC RESONANCE IMAGING
     Dates: start: 20050615, end: 20050615

REACTIONS (17)
  - NEPHROGENIC SYSTEMIC FIBROSIS [None]
  - OEDEMA PERIPHERAL [None]
  - ANHEDONIA [None]
  - SKIN FIBROSIS [None]
  - SCAR [None]
  - JOINT RANGE OF MOTION DECREASED [None]
  - JOINT STIFFNESS [None]
  - PAIN OF SKIN [None]
  - FIBROSIS [None]
  - EXTREMITY CONTRACTURE [None]
  - MUSCULOSKELETAL STIFFNESS [None]
  - MOBILITY DECREASED [None]
  - GENERAL PHYSICAL HEALTH DETERIORATION [None]
  - GAIT DISTURBANCE [None]
  - SKIN HYPERTROPHY [None]
  - SKIN INDURATION [None]
  - DEFORMITY [None]
